FAERS Safety Report 5006461-1 (Version None)
Quarter: 2006Q2

REPORT INFORMATION
  Report Type: 
  Country: None (occurrence: None)
  Receive Date: 20060519
  Receipt Date: 20060426
  Transmission Date: 20061013
  Serious: Yes (Hospitalization, Other)
  Sender: FDA-Public Use
  Company Number: GB-BRISTOL-MYERS SQUIBB COMPANY-13358189

PATIENT
  Age: 66 Year
  Sex: Female
  Weight: 80 kg

DRUGS (6)
  1. FUNGIZONE [Suspect]
     Indication: SYSTEMIC CANDIDA
     Route: 042
     Dates: start: 20060425, end: 20060101
  2. PANTOPRAZOLE [Concomitant]
     Indication: GASTROOESOPHAGEAL REFLUX DISEASE
     Route: 042
     Dates: start: 20060329
  3. CLEXANE [Concomitant]
     Indication: THROMBOSIS PROPHYLAXIS
     Route: 058
     Dates: start: 20060329
  4. FLUCONAZOLE [Concomitant]
     Indication: FUNGAL SEPSIS
     Route: 042
     Dates: start: 20060421, end: 20060423
  5. ORAMORPH SR [Concomitant]
     Indication: MUCOSAL INFLAMMATION
     Route: 048
     Dates: start: 20060423
  6. BIOTENE ORALBALANCE [Concomitant]
     Indication: MUCOSAL INFLAMMATION
     Route: 061
     Dates: start: 20060409

REACTIONS (9)
  - ARRHYTHMIA [None]
  - ATRIAL FIBRILLATION [None]
  - CARDIOVASCULAR DISORDER [None]
  - CHEST PAIN [None]
  - CHILLS [None]
  - DYSPNOEA [None]
  - HYPOTENSION [None]
  - MALAISE [None]
  - PYREXIA [None]
